FAERS Safety Report 18182060 (Version 1)
Quarter: 2020Q3

REPORT INFORMATION
  Report Type: Report from Study
  Country: BR (occurrence: BR)
  Receive Date: 20200821
  Receipt Date: 20200821
  Transmission Date: 20201103
  Serious: Yes (Other)
  Sender: FDA-Public Use
  Company Number: BR-SA-2020SA202033

PATIENT

DRUGS (22)
  1. PROPOFOL. [Concomitant]
     Active Substance: PROPOFOL
     Indication: PRE-EXISTING DISEASE
     Dosage: 20 ML, 1X
     Route: 042
     Dates: start: 20200616, end: 20200616
  2. METFORMIN [Concomitant]
     Active Substance: METFORMIN HYDROCHLORIDE
     Indication: TYPE 1 DIABETES MELLITUS
     Dosage: 500 MG, BID
     Route: 042
     Dates: start: 20200610, end: 20200615
  3. NOREPINEPHRINE. [Concomitant]
     Active Substance: NOREPINEPHRINE
     Indication: PRE-EXISTING DISEASE
     Dosage: UNK UNK, PRN; DOSE: 8 MG/ML
     Route: 042
     Dates: start: 20200616, end: 20200617
  4. APRESOLINE HYDROCHLORIDE [Concomitant]
     Active Substance: HYDRALAZINE HYDROCHLORIDE
     Indication: PROPHYLAXIS
     Dosage: 25 MG, TID
     Route: 048
     Dates: start: 20200611, end: 20200617
  5. CEFTRIAXONE. [Concomitant]
     Active Substance: CEFTRIAXONE
     Indication: PROPHYLAXIS
     Dosage: 2 G, QD
     Route: 042
     Dates: start: 20200611, end: 20200621
  6. QUETIAPINE. [Concomitant]
     Active Substance: QUETIAPINE
     Indication: PROPHYLAXIS
     Dosage: 100 MG, TID
     Route: 050
     Dates: start: 20200617, end: 20200629
  7. ACETAMINOPHEN. [Concomitant]
     Active Substance: ACETAMINOPHEN
     Indication: PROPHYLAXIS
     Dosage: 750 MG, PRN
     Route: 042
     Dates: start: 20200613
  8. METHYLPREDNISOLONE. [Concomitant]
     Active Substance: METHYLPREDNISOLONE
     Dosage: 40 MG, BID
     Route: 042
     Dates: start: 20200616, end: 20200624
  9. ONDANSETRON [Concomitant]
     Active Substance: ONDANSETRON
     Indication: PROPHYLAXIS
     Dosage: 4 MG, PRN
     Route: 042
     Dates: start: 20200610
  10. PANTOPRAZOLE [Concomitant]
     Active Substance: PANTOPRAZOLE
     Indication: PROPHYLAXIS
     Dosage: 40 MG, QD
     Route: 042
     Dates: start: 20200611
  11. NOVOLIN R [Concomitant]
     Active Substance: INSULIN HUMAN
     Indication: TYPE 1 DIABETES MELLITUS
     Dosage: 1 U, PRN
     Route: 058
     Dates: start: 20200610
  12. FENTANYL. [Concomitant]
     Active Substance: FENTANYL
     Indication: PROPHYLAXIS
     Dosage: 50 ML, PRN
     Route: 042
     Dates: start: 20200616, end: 20200617
  13. AZITROMYCIN [Concomitant]
     Active Substance: AZITHROMYCIN ANHYDROUS
     Indication: PROPHYLAXIS
     Dosage: 500 MG, QD
     Route: 042
     Dates: start: 20200611, end: 20200621
  14. INSULIN GLARGINE [Concomitant]
     Active Substance: INSULIN GLARGINE
     Dosage: 20 IU, PRN
     Route: 042
     Dates: start: 20200617, end: 20200620
  15. METAMIZOLE [Concomitant]
     Active Substance: METAMIZOLE
     Indication: PROPHYLAXIS
     Dosage: 1 G, PRN
     Route: 042
     Dates: start: 20200610
  16. AMLODIPINE [Concomitant]
     Active Substance: AMLODIPINE BESYLATE
     Indication: PROPHYLAXIS
     Dosage: 10 MG, QD
     Route: 042
     Dates: start: 20200611, end: 20200622
  17. CLEXANE [Concomitant]
     Active Substance: ENOXAPARIN SODIUM
     Indication: PROPHYLAXIS
     Dosage: 100 MG, BID
     Route: 058
     Dates: start: 20200611, end: 20200618
  18. MIDAZOLAM. [Concomitant]
     Active Substance: MIDAZOLAM
     Indication: PROPHYLAXIS
     Dosage: 100 ML, PRN
     Route: 042
     Dates: start: 20200616, end: 20200625
  19. INSULIN GLARGINE [Concomitant]
     Active Substance: INSULIN GLARGINE
     Dosage: 10 IU, PRN
     Route: 042
     Dates: start: 20200617, end: 20200620
  20. SARILUMAB [Suspect]
     Active Substance: SARILUMAB
     Indication: COVID-19
     Dosage: INFUSION RATE: 100 ML/H, 1X
     Route: 042
     Dates: start: 20200616, end: 20200616
  21. PROPOFOL. [Concomitant]
     Active Substance: PROPOFOL
     Dosage: 100 ML, PRN
     Route: 042
     Dates: start: 20200618, end: 20200625
  22. ROCURONIUM [Concomitant]
     Active Substance: ROCURONIUM BROMIDE
     Indication: PROPHYLAXIS
     Dosage: 50 MG/ML, PRN
     Route: 042
     Dates: start: 20200616, end: 20200618

REACTIONS (1)
  - Alanine aminotransferase increased [Recovered/Resolved]

NARRATIVE: CASE EVENT DATE: 20200618
